FAERS Safety Report 25024798 (Version 1)
Quarter: 2025Q1

REPORT INFORMATION
  Report Type: Report from Study
  Country: US (occurrence: US)
  Receive Date: 20250228
  Receipt Date: 20250228
  Transmission Date: 20250408
  Serious: Yes (Other)
  Sender: BAUSCH AND LOMB
  Company Number: US-BAUSCH-BL-2024-014238

PATIENT
  Age: 49 Year
  Sex: Male
  Weight: 95.34 kg

DRUGS (2)
  1. SILIQ [Suspect]
     Active Substance: BRODALUMAB
     Indication: Psoriatic arthropathy
     Dosage: 210 MG/1.5ML SOSY (SOLUTION PREFILLED SYRINGE), EVERY 2 WEEKS
     Route: 058
  2. SILIQ [Suspect]
     Active Substance: BRODALUMAB
     Indication: Product use in unapproved indication

REACTIONS (4)
  - Psoriatic arthropathy [Unknown]
  - Therapy interrupted [Unknown]
  - Insurance issue [Unknown]
  - Product use in unapproved indication [Unknown]

NARRATIVE: CASE EVENT DATE: 20240101
